FAERS Safety Report 21521511 (Version 1)
Quarter: 2022Q4

REPORT INFORMATION
  Report Type: Spontaneous
  Country: US (occurrence: US)
  Receive Date: 20221028
  Receipt Date: 20221028
  Transmission Date: 20230112
  Serious: No
  Sender: FDA-Public Use
  Company Number: US-SANOFI-01327722

PATIENT
  Sex: Female

DRUGS (2)
  1. MULTAQ [Suspect]
     Active Substance: DRONEDARONE
     Dosage: UNK
  2. JANSSEN COVID-19 VACCINE [Concomitant]
     Active Substance: AD26.COV2.S
     Indication: Immunisation
     Dosage: UNK

REACTIONS (1)
  - Heart rate increased [Unknown]
